FAERS Safety Report 10623054 (Version 2)
Quarter: 2014Q4

REPORT INFORMATION
  Report Type: Report from Study
  Country: US (occurrence: US)
  Receive Date: 20141203
  Receipt Date: 20141212
  Transmission Date: 20150529
  Serious: Yes (Hospitalization)
  Sender: FDA-Public Use
  Company Number: US-GLAXOSMITHKLINE-US2014GSK024563

PATIENT
  Age: 70 Year
  Sex: Male
  Weight: 96 kg

DRUGS (19)
  1. IDELALISIB [Suspect]
     Active Substance: IDELALISIB
     Dosage: 100 MG, BID
     Route: 048
     Dates: start: 20140425, end: 20140508
  2. PRILOSEC [Concomitant]
     Active Substance: OMEPRAZOLE MAGNESIUM
  3. COZAAR [Concomitant]
     Active Substance: LOSARTAN POTASSIUM
  4. ROCALTROL [Concomitant]
     Active Substance: CALCITRIOL
  5. LASIX [Concomitant]
     Active Substance: FUROSEMIDE
  6. ZETIA [Concomitant]
     Active Substance: EZETIMIBE
  7. ZOFRAN [Concomitant]
     Active Substance: ONDANSETRON HYDROCHLORIDE
  8. SULFAMETHOXAZOLE-TRIMETHOPRIM (SMZ) [Concomitant]
     Active Substance: SULFAMETHOXAZOLE\TRIMETHOPRIM
  9. IDELALISIB [Suspect]
     Active Substance: IDELALISIB
     Dosage: 150 MG, BID
     Route: 048
     Dates: start: 20140509
  10. ZITHROMAX [Concomitant]
     Active Substance: AZITHROMYCIN DIHYDRATE
  11. NORVASC [Concomitant]
     Active Substance: AMLODIPINE BESYLATE
  12. CLEOCIN-T [Concomitant]
  13. ZOVIRAX [Concomitant]
     Active Substance: ACYCLOVIR
  14. OFATUMUMAB [Suspect]
     Active Substance: OFATUMUMAB
     Indication: CHRONIC LYMPHOCYTIC LEUKAEMIA
     Dosage: 1000 MG, CYC
     Route: 042
     Dates: start: 20131009
  15. PROSCAR [Concomitant]
     Active Substance: FINASTERIDE
  16. RETIN-A [Concomitant]
     Active Substance: TRETINOIN
  17. ZYLOPRIM [Concomitant]
     Active Substance: ALLOPURINOL
  18. IDELALISIB [Suspect]
     Active Substance: IDELALISIB
     Indication: CHRONIC LYMPHOCYTIC LEUKAEMIA
     Dosage: 150 MG, BID
     Route: 048
     Dates: start: 20131002, end: 20140424
  19. VITAMIN D3 [Concomitant]
     Active Substance: CHOLECALCIFEROL

REACTIONS (1)
  - Febrile neutropenia [Recovered/Resolved]

NARRATIVE: CASE EVENT DATE: 20141104
